FAERS Safety Report 4660158-6 (Version None)
Quarter: 2005Q2

REPORT INFORMATION
  Report Type: 
  Country: None (occurrence: None)
  Receive Date: 20050427
  Receipt Date: 20050307
  Transmission Date: 20051028
  Serious: No
  Sender: FDA-Public Use
  Company Number: 212894

PATIENT
  Age: 13 Year
  Sex: Female
  Weight: 77.1 kg

DRUGS (2)
  1. XOLAIR [Suspect]
     Indication: ASTHMA
     Dosage: 375 MG, QW, SUBCUTANEOUS
     Route: 058
     Dates: start: 20050203, end: 20050302
  2. ALLERGY SHOTS (ALLERGENIC EXTRACTS) [Concomitant]

REACTIONS (1)
  - ANAEMIA [None]
